FAERS Safety Report 8219127-1 (Version None)
Quarter: 2012Q1

REPORT INFORMATION
  Report Type: 
  Country: None (occurrence: None)
  Receive Date: 20120319
  Receipt Date: 20120309
  Transmission Date: 20120608
  Serious: Yes (Hospitalization, Other)
  Sender: FDA-Public Use
  Company Number: US-BAYER-201011773NA

PATIENT
  Age: 29 Year
  Sex: Female
  Weight: 90.909 kg

DRUGS (1)
  1. YAZ [Suspect]
     Indication: ORAL CONTRACEPTION
     Dosage: 1 TABLET PER DAY
     Route: 048
     Dates: start: 20070501, end: 20080101

REACTIONS (19)
  - DEEP VEIN THROMBOSIS [None]
  - WEIGHT INCREASED [None]
  - DYSSTASIA [None]
  - DEPRESSION [None]
  - THROMBOSIS [None]
  - FATIGUE [None]
  - INSOMNIA [None]
  - JOINT SWELLING [None]
  - JOINT STIFFNESS [None]
  - TRAUMATIC LUNG INJURY [None]
  - PALPITATIONS [None]
  - SELF ESTEEM DECREASED [None]
  - TENDON INJURY [None]
  - PULMONARY EMBOLISM [None]
  - ABORTION SPONTANEOUS [None]
  - MENORRHAGIA [None]
  - FEAR [None]
  - MIGRAINE [None]
  - ANXIETY [None]
